FAERS Safety Report 5021136-0 (Version None)
Quarter: 2006Q2

REPORT INFORMATION
  Report Type: 
  Country: None (occurrence: None)
  Receive Date: 20060605
  Receipt Date: 20060523
  Transmission Date: 20061013
  Serious: Yes (Other)
  Sender: FDA-Public Use
  Company Number: 2006067407

PATIENT
  Age: 56 Year
  Sex: Male
  Weight: 113.3993 kg

DRUGS (1)
  1. CELEBREX [Suspect]
     Indication: ILL-DEFINED DISORDER
     Dosage: (100 MG, UNKNOWN),

REACTIONS (8)
  - ARTHROPATHY [None]
  - CHEST DISCOMFORT [None]
  - ERUCTATION [None]
  - FLATULENCE [None]
  - GASTRITIS [None]
  - PHARMACEUTICAL PRODUCT COMPLAINT [None]
  - SELF-MEDICATION [None]
  - TREATMENT NONCOMPLIANCE [None]
